FAERS Safety Report 23841621 (Version 1)
Quarter: 2024Q2

REPORT INFORMATION
  Report Type: Spontaneous
  Country: BE (occurrence: BE)
  Receive Date: 20240510
  Receipt Date: 20240510
  Transmission Date: 20240715
  Serious: Yes (Other)
  Sender: FDA-Public Use
  Company Number: BE-MLMSERVICE-20240422-PI034671-00101-1

PATIENT
  Age: 37 Year
  Sex: Female

DRUGS (3)
  1. ETOPOSIDE [Suspect]
     Active Substance: ETOPOSIDE
     Indication: Pleural neoplasm
  2. CISPLATIN [Suspect]
     Active Substance: CISPLATIN
     Indication: Pleural neoplasm
  3. IFOSFAMIDE [Suspect]
     Active Substance: IFOSFAMIDE
     Indication: Pleural neoplasm

REACTIONS (7)
  - Peripheral sensory neuropathy [Unknown]
  - Deafness [Unknown]
  - Febrile neutropenia [Unknown]
  - Anaemia [Unknown]
  - Thrombocytopenia [Unknown]
  - Tinnitus [Unknown]
  - Off label use [Unknown]
